FAERS Safety Report 5922813-7 (Version None)
Quarter: 2008Q4

REPORT INFORMATION
  Report Type: 
  Country: None (occurrence: None)
  Receive Date: 20081017
  Receipt Date: 20081008
  Transmission Date: 20090506
  Serious: Yes (Other)
  Sender: FDA-Public Use
  Company Number: US-B.I. PHARMACEUTICALS,INC./RIDGEFIELD-2008-BP-15635BP

PATIENT
  Age: 53 Year
  Sex: Male

DRUGS (5)
  1. ZANTAC 75 [Suspect]
     Indication: DYSPEPSIA
     Route: 048
     Dates: start: 20081007
  2. OMEPIRAZOLE [Concomitant]
     Indication: GASTROOESOPHAGEAL REFLUX DISEASE
  3. AVONEX [Concomitant]
     Indication: MULTIPLE SCLEROSIS
  4. TYLENOL (CAPLET) [Concomitant]
  5. MYOLAX [Concomitant]
     Indication: ABDOMINAL DISCOMFORT

REACTIONS (2)
  - CHEST PAIN [None]
  - INCORRECT DOSE ADMINISTERED [None]
